FAERS Safety Report 16675443 (Version 1)
Quarter: 2019Q3

REPORT INFORMATION
  Report Type: Spontaneous
  Country: PT (occurrence: PT)
  Receive Date: 20190806
  Receipt Date: 20190806
  Transmission Date: 20191004
  Serious: Yes (Other)
  Sender: FDA-Public Use
  Company Number: PHHY2019PT174252

PATIENT
  Age: 60 Year
  Sex: Female

DRUGS (8)
  1. PREGABALIN. [Suspect]
     Active Substance: PREGABALIN
     Dosage: 50 MG, BID
     Route: 048
  2. BUPRENORPHINE. [Suspect]
     Active Substance: BUPRENORPHINE
     Dosage: 35 UG/HR, QD
     Route: 062
  3. TRAMADOL. [Suspect]
     Active Substance: TRAMADOL
     Indication: THROMBOANGIITIS OBLITERANS
     Dosage: 37.5 MG, BID
     Route: 065
  4. BUPRENORPHINE. [Suspect]
     Active Substance: BUPRENORPHINE
     Indication: THROMBOANGIITIS OBLITERANS
     Dosage: 17.5 UG/HR, QD
     Route: 062
  5. PARACETAMOL [Suspect]
     Active Substance: ACETAMINOPHEN
     Indication: THROMBOANGIITIS OBLITERANS
     Dosage: 375 MG, BID
     Route: 065
  6. ILOPROST. [Suspect]
     Active Substance: ILOPROST
     Indication: THROMBOANGIITIS OBLITERANS
     Route: 065
  7. ASPIRIN. [Suspect]
     Active Substance: ASPIRIN
     Indication: THROMBOANGIITIS OBLITERANS
     Dosage: 150 MG, UNK
     Route: 065
  8. PREGABALIN. [Suspect]
     Active Substance: PREGABALIN
     Indication: THROMBOANGIITIS OBLITERANS
     Dosage: 25 MG, BID
     Route: 048

REACTIONS (4)
  - Therapy non-responder [Unknown]
  - Pain [Unknown]
  - Infection [Unknown]
  - Drug ineffective [Unknown]
